FAERS Safety Report 5530659-7 (Version None)
Quarter: 2007Q4

REPORT INFORMATION
  Report Type: 
  Country: None (occurrence: None)
  Receive Date: 20071130
  Receipt Date: 20071128
  Transmission Date: 20080405
  Serious: Yes (Hospitalization)
  Sender: FDA-Public Use
  Company Number: B0497712A

PATIENT
  Sex: Female

DRUGS (1)
  1. ZINACEF [Suspect]
     Indication: MULTIPLE INJURIES
     Dosage: 1.5G PER DAY
     Route: 042

REACTIONS (2)
  - ANXIETY [None]
  - DYSPNOEA [None]
